FAERS Safety Report 8880942 (Version 4)
Quarter: 2012Q4

REPORT INFORMATION
  Report Type: 
  Country: AU (occurrence: AU)
  Receive Date: 20121101
  Receipt Date: 20121225
  Transmission Date: 20130627
  Serious: Yes (Hospitalization, Other)
  Sender: FDA-Public Use
  Company Number: AU-BRISTOL-MYERS SQUIBB COMPANY-17063629

PATIENT
  Sex: Male

DRUGS (1)
  1. ONGLYZA TABS [Suspect]
     Route: 048

REACTIONS (2)
  - Cholelithiasis [Unknown]
  - Cardiac disorder [Unknown]
